FAERS Safety Report 9862922 (Version 1)
Quarter: 2014Q1

REPORT INFORMATION
  Report Type: Report from Study
  Country: US (occurrence: US)
  Receive Date: 20140203
  Receipt Date: 20140203
  Transmission Date: 20141002
  Serious: Yes (Other)
  Sender: FDA-Public Use
  Company Number: PHEH2014US001866

PATIENT
  Sex: Female

DRUGS (7)
  1. NEORAL [Suspect]
     Indication: LIVER TRANSPLANT
     Dosage: 125 MG, BID
     Route: 048
     Dates: start: 200712
  2. NEXIUM [Suspect]
  3. CELLCEPT [Concomitant]
  4. LEVEMIR [Concomitant]
  5. HUMALOG [Concomitant]
  6. LOSARTAN [Concomitant]
  7. CARVEDILOL [Concomitant]

REACTIONS (4)
  - Hepatic vein thrombosis [Unknown]
  - Liver graft loss [Unknown]
  - Memory impairment [Unknown]
  - Drug level changed [Unknown]
